FAERS Safety Report 14768192 (Version 2)
Quarter: 2018Q2

REPORT INFORMATION
  Report Type: Spontaneous
  Country: BR (occurrence: BR)
  Receive Date: 20180417
  Receipt Date: 20180427
  Transmission Date: 20180711
  Serious: Yes (Other)
  Sender: FDA-Public Use
  Company Number: PHHY2018BR064684

PATIENT
  Age: 52 Year
  Sex: Female
  Weight: 53 kg

DRUGS (2)
  1. TEGRETOL [Suspect]
     Active Substance: CARBAMAZEPINE
     Indication: FEBRILE CONVULSION
     Dosage: 3 DF, QD (IN MORNING, LUNCH AND BEFORE DINNER)
     Route: 048
     Dates: start: 2014
  2. PHENOBARBITAL. [Concomitant]
     Active Substance: PHENOBARBITAL
     Indication: SEIZURE
     Dosage: 100 MG, UNK
     Route: 065

REACTIONS (4)
  - Fall [Recovering/Resolving]
  - Limb injury [Recovering/Resolving]
  - Somnolence [Recovering/Resolving]
  - Tendon disorder [Recovered/Resolved]

NARRATIVE: CASE EVENT DATE: 20180402
